FAERS Safety Report 25889962 (Version 2)
Quarter: 2025Q4

REPORT INFORMATION
  Report Type: Spontaneous
  Country: EU (occurrence: EU)
  Receive Date: 20251007
  Receipt Date: 20251104
  Transmission Date: 20260117
  Serious: Yes (Other)
  Sender: NOVARTIS
  Company Number: EU-002147023-NVSC2025DE149447

PATIENT
  Sex: Female

DRUGS (3)
  1. EXFORGE [Suspect]
     Active Substance: AMLODIPINE BESYLATE\VALSARTAN
     Indication: Product used for unknown indication
     Dosage: UNK, QD (DOSE: 5/160 MG) (IN THE EVENING)
     Route: 065
     Dates: end: 20250920
  2. EXFORGE [Suspect]
     Active Substance: AMLODIPINE BESYLATE\VALSARTAN
     Dosage: UNK, BID (DOSE: 5/160 MG) (IN THE MORNING AND IN THE EVENING)
     Route: 065
     Dates: start: 20250921, end: 2025
  3. ROSUVASTATIN [Concomitant]
     Active Substance: ROSUVASTATIN
     Indication: Product used for unknown indication
     Dosage: UNK
     Route: 065

REACTIONS (8)
  - Cerebrovascular accident [Unknown]
  - Bladder cancer [Unknown]
  - Blood pressure increased [Unknown]
  - Fall [Unknown]
  - Pain [Unknown]
  - Product use issue [Unknown]
  - Fluid retention [Unknown]
  - Cyst [Unknown]

NARRATIVE: CASE EVENT DATE: 20250901
